FAERS Safety Report 7066489-7 (Version None)
Quarter: 2010Q4

REPORT INFORMATION
  Report Type: 
  Country: None (occurrence: None)
  Receive Date: 20101027
  Receipt Date: 20100524
  Transmission Date: 20110411
  Serious: No
  Sender: FDA-Public Use
  Company Number: US-WYE-H15334010

PATIENT
  Sex: Female

DRUGS (1)
  1. PREMPRO [Suspect]
     Indication: PRODUCT USED FOR UNKNOWN INDICATION
     Dosage: DOSE UNSPECIFIED
     Route: 065
     Dates: start: 20100101

REACTIONS (3)
  - HEADACHE [None]
  - VULVOVAGINAL CANDIDIASIS [None]
  - WEIGHT INCREASED [None]
